FAERS Safety Report 9060326 (Version 1)
Quarter: 2013Q1

REPORT INFORMATION
  Report Type: Spontaneous
  Country: RU (occurrence: RU)
  Receive Date: 20130212
  Receipt Date: 20130212
  Transmission Date: 20140127
  Serious: Yes (Other)
  Sender: FDA-Public Use
  Company Number: RU-ROCHE-1189433

PATIENT
  Age: 31 Year
  Sex: Female

DRUGS (1)
  1. XENICAL [Suspect]
     Indication: SELF-MEDICATION
     Route: 048

REACTIONS (2)
  - Tooth disorder [Recovered/Resolved]
  - Weight increased [Unknown]
